FAERS Safety Report 10347519 (Version 3)
Quarter: 2014Q3

REPORT INFORMATION
  Report Type: Report from Study
  Country: US (occurrence: US)
  Receive Date: 20140729
  Receipt Date: 20140822
  Transmission Date: 20150326
  Serious: Yes (Life-Threatening, Hospitalization)
  Sender: FDA-Public Use
  Company Number: US-PFIZER INC-2014208260

PATIENT
  Age: 59 Year
  Sex: Female

DRUGS (34)
  1. 5-FU [Suspect]
     Active Substance: FLUOROURACIL
     Dosage: 2300 MG, 1 IN 2 WEEKS
     Route: 042
     Dates: end: 20130809
  2. LOMOTIL [Concomitant]
     Active Substance: ATROPINE SULFATE\DIPHENOXYLATE HYDROCHLORIDE
     Indication: DIARRHOEA
     Dosage: 2.5/0.025 MG FOUR TIMES A DAY (2.5 MG,1 IN 1 AS REQUIRED)
     Route: 048
     Dates: start: 20130610
  3. 5-FU [Suspect]
     Active Substance: FLUOROURACIL
     Indication: COLON CANCER
     Dosage: 2960 MG, 1 IN 2 WEEKS
     Route: 042
     Dates: start: 20130531
  4. ADVIL [Concomitant]
     Active Substance: IBUPROFEN
     Dosage: UNK
     Dates: start: 20130726
  5. CALCIUM CARBONATE. [Concomitant]
     Active Substance: CALCIUM CARBONATE
     Indication: GASTROOESOPHAGEAL REFLUX DISEASE
     Dosage: 500 MG, UNK
     Route: 048
     Dates: start: 20130603
  6. IRINOTECAN HCL [Suspect]
     Active Substance: IRINOTECAN HYDROCHLORIDE
     Dosage: 175 MG,1 IN 2 WEEKS
     Route: 042
     Dates: end: 20130809
  7. ACYCLOVIR. [Concomitant]
     Active Substance: ACYCLOVIR
     Indication: HERPES ZOSTER
     Dosage: 1000 MG, UNK
     Route: 048
     Dates: start: 20130531
  8. LOPERAMIDE [Concomitant]
     Active Substance: LOPERAMIDE
     Indication: DIARRHOEA
     Dosage: 4 MG, AS NEEDED (4 MG, 1 IN 1 AS REQUIRED)
     Route: 048
     Dates: start: 20130531
  9. MEHD7945A [Suspect]
     Active Substance: INVESTIGATIONAL PRODUCT
     Indication: COLON CANCER
     Dosage: 1100 MG,1 IN 2 WEEKS
     Route: 042
     Dates: start: 20130531, end: 20130809
  10. ACYCLOVIR. [Concomitant]
     Active Substance: ACYCLOVIR
     Indication: SKIN INFECTION
     Dosage: 800 MG, UNK
     Route: 048
  11. POTASSIUM CHLORIDE. [Concomitant]
     Active Substance: POTASSIUM CHLORIDE
     Indication: HYPOKALAEMIA
     Dosage: 40 MEQ (20 MEQ, 2X/DAY)
     Route: 048
  12. LIDOCAINE/PRILOCAINE [Concomitant]
     Indication: PROPHYLAXIS
     Dosage: 1 OTHER, UNK
     Route: 061
  13. LOPERAMIDE [Concomitant]
     Active Substance: LOPERAMIDE
     Dosage: FOUR TIMES A DAY AS REQUIRED (2 MG)
     Route: 048
  14. DEXAMETHASONE. [Concomitant]
     Active Substance: DEXAMETHASONE
     Indication: PREMEDICATION
     Dosage: 10 MG, UNK
     Route: 042
     Dates: start: 20130531
  15. PROCHLORPERAZINE. [Concomitant]
     Active Substance: PROCHLORPERAZINE
     Indication: NAUSEA
     Dosage: 10 MG, UNK
     Route: 048
     Dates: start: 20130608
  16. OXYCODONE [Concomitant]
     Active Substance: OXYCODONE
     Indication: ABDOMINAL PAIN
     Dosage: 5 MG, UNK
     Route: 048
     Dates: start: 20130313
  17. POTASSIUM CHLORIDE. [Concomitant]
     Active Substance: POTASSIUM CHLORIDE
     Dosage: 40, UNK
     Route: 048
     Dates: start: 20130728, end: 20130731
  18. PALONOSETRON [Concomitant]
     Active Substance: PALONOSETRON
     Indication: PREMEDICATION
     Dosage: 0.25 MG, UNK
     Route: 042
     Dates: start: 20130531
  19. LORAZEPAM. [Concomitant]
     Active Substance: LORAZEPAM
     Indication: NAUSEA
     Dosage: 0.5 MG, UNK
     Route: 048
     Dates: start: 20130605
  20. IRINOTECAN HCL [Suspect]
     Active Substance: IRINOTECAN HYDROCHLORIDE
     Indication: COLON CANCER
     Dosage: 222 MG, 1 IN 2 WEEKS
     Route: 042
     Dates: start: 20130531
  21. RESTORIL [Concomitant]
     Active Substance: TEMAZEPAM
     Indication: INSOMNIA
     Dosage: 15 MG, UNK
     Route: 048
     Dates: start: 20130403
  22. ATROPINE [Concomitant]
     Active Substance: ATROPINE
     Indication: PREMEDICATION
     Dosage: 0.5 MG, UNK
     Route: 042
     Dates: start: 20130531
  23. OMEPRAZOLE. [Concomitant]
     Active Substance: OMEPRAZOLE
     Indication: GASTROOESOPHAGEAL REFLUX DISEASE
     Dosage: 20 MG, UNK
     Route: 048
     Dates: start: 20130610
  24. FOSAPREPITANT [Concomitant]
     Active Substance: FOSAPREPITANT
     Indication: NAUSEA
     Dosage: 150 MG, UNK
     Route: 042
     Dates: start: 20130618
  25. ERTAPENEM [Concomitant]
     Active Substance: ERTAPENEM
     Dosage: UNK, VIA CPC
     Dates: start: 20130731, end: 20130806
  26. LORAZEPAM. [Concomitant]
     Active Substance: LORAZEPAM
     Indication: VOMITING
  27. DIPHENHYDRAMINE [Concomitant]
     Active Substance: DIPHENHYDRAMINE
     Indication: PREMEDICATION
     Dosage: 25 MG, UNK
  28. POTASSIUM PHOSPHATE/SODIUM PHOSPHATE [Concomitant]
  29. LEUCOVORIN [Suspect]
     Active Substance: LEUCOVORIN
     Indication: COLON CANCER
     Dosage: 592MG, 1 IN 2 WEEKS
     Route: 042
     Dates: start: 20130531
  30. LEUCOVORIN [Suspect]
     Active Substance: LEUCOVORIN
     Dosage: 584 MG, 1 IN 2 WEEKS
     Route: 042
     Dates: end: 20130809
  31. ZOFRAN [Concomitant]
     Active Substance: ONDANSETRON HYDROCHLORIDE
     Dosage: UNK
  32. PROCHLORPERAZINE. [Concomitant]
     Active Substance: PROCHLORPERAZINE
     Indication: VOMITING
  33. ONDANSETRON [Concomitant]
     Active Substance: ONDANSETRON
     Indication: NAUSEA
     Dosage: 4 MG, UNK
     Route: 048
     Dates: start: 20130227
  34. VICODIN [Concomitant]
     Active Substance: ACETAMINOPHEN\HYDROCODONE BITARTRATE
     Indication: ABDOMINAL PAIN
     Dosage: 1-2 TABLETS EVERY 4 HOURS AS REQUIRED
     Route: 048
     Dates: start: 20130227

REACTIONS (1)
  - Septic shock [Recovered/Resolved with Sequelae]

NARRATIVE: CASE EVENT DATE: 20130727
